FAERS Safety Report 14666433 (Version 1)
Quarter: 2018Q1

REPORT INFORMATION
  Report Type: Spontaneous
  Country: US (occurrence: US)
  Receive Date: 20180320
  Receipt Date: 20180320
  Transmission Date: 20180509
  Serious: Yes (Hospitalization)
  Sender: FDA-Public Use
  Company Number: None

PATIENT
  Age: 59 Year
  Sex: Male

DRUGS (1)
  1. LONSURF [Suspect]
     Active Substance: TIPIRACIL HYDROCHLORIDE\TRIFLURIDINE
     Indication: MALIGNANT ANORECTAL NEOPLASM
     Dosage: 3 TABS BID M F 2WKS ON 2 WEEKS OFF, ORAL
     Route: 048
     Dates: start: 20180223

REACTIONS (3)
  - Nausea [None]
  - Fatigue [None]
  - Intestinal obstruction [None]

NARRATIVE: CASE EVENT DATE: 20180307
